FAERS Safety Report 13664086 (Version 1)
Quarter: 2017Q2

REPORT INFORMATION
  Report Type: Spontaneous
  Country: IT (occurrence: IT)
  Receive Date: 20170619
  Receipt Date: 20170619
  Transmission Date: 20170830
  Serious: Yes (Hospitalization, Other)
  Sender: FDA-Public Use
  Company Number: IT-LUPIN PHARMACEUTICALS INC.-2017-02347

PATIENT
  Age: 1 Month
  Sex: Female

DRUGS (1)
  1. PAROXETINE. [Suspect]
     Active Substance: PAROXETINE
     Indication: PRODUCT USED FOR UNKNOWN INDICATION
     Dosage: NUMBER OF DROPS EQUIVALENT TO 20 MG
     Route: 065

REACTIONS (3)
  - Toxicity to various agents [Recovering/Resolving]
  - Accidental overdose [Unknown]
  - Generalised tonic-clonic seizure [Recovering/Resolving]
